FAERS Safety Report 9058469 (Version 4)
Quarter: 2013Q3

REPORT INFORMATION
  Report Type: Spontaneous
  Country: GB (occurrence: None)
  Receive Date: 20130117
  Receipt Date: 20130913
  Transmission Date: 20140515
  Serious: Yes (Hospitalization)
  Sender: FDA-Public Use
  Company Number: ACO_33646_2013

PATIENT
  Age: 72 Year
  Sex: Female

DRUGS (4)
  1. FAMPRIDINE [Suspect]
     Indication: MULTIPLE SCLEROSIS
     Route: 048
     Dates: start: 20120717, end: 201211
  2. AMITRIPTYLINE [Concomitant]
  3. NITROFURANTOIN [Concomitant]
  4. ALENDRONIC ACID (ALENDRONATE SODIUM) [Concomitant]

REACTIONS (4)
  - Urinary tract infection [None]
  - Progressive multiple sclerosis [None]
  - Fall [None]
  - Urinary tract infection [None]
